FAERS Safety Report 19283619 (Version 1)
Quarter: 2021Q2

REPORT INFORMATION
  Report Type: Spontaneous
  Country: US (occurrence: US)
  Receive Date: 20210521
  Receipt Date: 20210521
  Transmission Date: 20210717
  Serious: Yes (Hospitalization)
  Sender: FDA-Public Use
  Company Number: None

PATIENT
  Age: 86 Year
  Sex: Female

DRUGS (1)
  1. RETACRIT [Suspect]
     Active Substance: EPOETIN ALFA-EPBX
     Indication: MYELOFIBROSIS
     Dosage: ?          OTHER DOSE:10,000 UNITS ;?
     Route: 058
     Dates: start: 20210330

REACTIONS (2)
  - Pneumonia [None]
  - Hypertension [None]

NARRATIVE: CASE EVENT DATE: 202104
